FAERS Safety Report 9835233 (Version 1)
Quarter: 2014Q1

REPORT INFORMATION
  Report Type: Spontaneous
  Country: US (occurrence: US)
  Receive Date: 20140122
  Receipt Date: 20140122
  Transmission Date: 20141002
  Serious: No
  Sender: FDA-Public Use
  Company Number: US-BRISTOL-MYERS SQUIBB COMPANY-19880509

PATIENT
  Age: 90 Year
  Sex: Female

DRUGS (2)
  1. ELIQUIS [Suspect]
     Dates: start: 2013
  2. AMIODARONE [Concomitant]

REACTIONS (3)
  - Rash pruritic [Unknown]
  - Skin discolouration [Unknown]
  - Macule [Unknown]
